FAERS Safety Report 20154689 (Version 2)
Quarter: 2021Q4

REPORT INFORMATION
  Report Type: Other
  Country: TH (occurrence: None)
  Receive Date: 20211207
  Receipt Date: 20211209
  Transmission Date: 20220303
  Serious: Yes (Other)
  Sender: FDA-Public Use
  Company Number: TH-ROCHE-2968746

PATIENT

DRUGS (6)
  1. MYCOPHENOLATE MOFETIL [Suspect]
     Active Substance: MYCOPHENOLATE MOFETIL
     Indication: Transplant rejection
     Dosage: OR VIA NASOGASTRIC TUBE
     Route: 048
  2. TACROLIMUS [Suspect]
     Active Substance: TACROLIMUS
     Indication: Transplant rejection
     Dosage: ORAL OR VIA NASOGASTRIC TUBE IN 2 DIVIDED DOSES
     Route: 048
  3. AZATHIOPRINE [Suspect]
     Active Substance: AZATHIOPRINE
     Indication: Transplant rejection
     Dosage: 1-2 MG/KG ORAL OR VIA NASOGASTRIC TUBE
     Route: 065
  4. CYCLOSPORINE [Suspect]
     Active Substance: CYCLOSPORINE
     Indication: Transplant rejection
     Dosage: 4-6 MG/KG ORAL OR VIA NASOGASTRIC TUBE
     Route: 065
  5. METHYLPREDNISOLONE [Suspect]
     Active Substance: METHYLPREDNISOLONE
     Indication: Transplant rejection
     Route: 042
  6. PREDNISOLONE [Suspect]
     Active Substance: PREDNISOLONE
     Indication: Transplant rejection
     Route: 048

REACTIONS (7)
  - Cytomegalovirus infection [Unknown]
  - Neutropenia [Recovered/Resolved]
  - Cholangitis [Unknown]
  - Cytomegalovirus infection reactivation [Unknown]
  - Thrombocytopenia [Unknown]
  - Bacterial infection [Unknown]
  - Fungal infection [Unknown]
